FAERS Safety Report 13546996 (Version 2)
Quarter: 2017Q2

REPORT INFORMATION
  Report Type: Spontaneous
  Country: FI (occurrence: FI)
  Receive Date: 20170515
  Receipt Date: 20170602
  Transmission Date: 20170830
  Serious: Yes (Hospitalization, Other)
  Sender: FDA-Public Use
  Company Number: FI-INCYTE CORPORATION-2017IN003654

PATIENT

DRUGS (3)
  1. ALLONOL [Concomitant]
     Active Substance: ALLOPURINOL
     Indication: GOUT
     Dosage: 100 MG, QD
  2. JAKAVI [Suspect]
     Active Substance: RUXOLITINIB
     Indication: MYELOFIBROSIS
     Dosage: 20 MG, QD
     Route: 065
     Dates: start: 20170130, end: 20170224
  3. EPOETIN ZETA [Concomitant]
     Active Substance: ERYTHROPOIETIN
     Indication: HAEMOGLOBIN INCREASED
     Dosage: 60000 IU, QW

REACTIONS (3)
  - Tuberculosis [Not Recovered/Not Resolved]
  - Neck pain [Unknown]
  - Lymphadenopathy [Unknown]

NARRATIVE: CASE EVENT DATE: 201702
